FAERS Safety Report 6960219-2 (Version None)
Quarter: 2010Q3

REPORT INFORMATION
  Report Type: 
  Country: None (occurrence: None)
  Receive Date: 20100823
  Receipt Date: 20100709
  Transmission Date: 20110219
  Serious: No
  Sender: FDA-Public Use
  Company Number: 015341

PATIENT
  Sex: Male

DRUGS (1)
  1. CIMZIA [Suspect]
     Indication: CROHN'S DISEASE
     Dosage: (200 MG 1X/2 WEEKS SUBCUTANEOUS)
     Route: 058
     Dates: start: 20091028

REACTIONS (5)
  - BACK PAIN [None]
  - INJECTION SITE PAIN [None]
  - PAIN [None]
  - POST PROCEDURAL DISCHARGE [None]
  - SLEEP DISORDER [None]
